FAERS Safety Report 8434891-4 (Version None)
Quarter: 2012Q2

REPORT INFORMATION
  Report Type: 
  Country: None (occurrence: None)
  Receive Date: 20120608
  Receipt Date: 20120531
  Transmission Date: 20120825
  Serious: Yes (Life-Threatening, Other)
  Sender: FDA-Public Use
  Company Number: FK201201517

PATIENT
  Age: 28 Day
  Sex: Male
  Weight: 4.5 kg

DRUGS (3)
  1. AMIODARONE HCL [Suspect]
     Indication: CARDIAC FAILURE
     Dosage: (5MG/KG) FOR 30 MINS, INTRAVENOUS (NOT OTHERWISE SPECIFIED) CARDIAC FAILURE TACHYCARDIA PAROXYSMAL
     Route: 042
  2. AMIODARONE HCL [Suspect]
     Indication: TACHYCARDIA PAROXYSMAL
     Dosage: (5MG/KG) FOR 30 MINS, INTRAVENOUS (NOT OTHERWISE SPECIFIED) CARDIAC FAILURE TACHYCARDIA PAROXYSMAL
     Route: 042
  3. ADENOSINE [Concomitant]

REACTIONS (2)
  - SUPRAVENTRICULAR TACHYCARDIA [None]
  - CIRCULATORY COLLAPSE [None]
